FAERS Safety Report 12756279 (Version 1)
Quarter: 2016Q3

REPORT INFORMATION
  Report Type: Spontaneous
  Country: US (occurrence: US)
  Receive Date: 20160916
  Receipt Date: 20160916
  Transmission Date: 20161109
  Serious: No
  Sender: FDA-Public Use
  Company Number: US-PFIZER INC-2013116432

PATIENT
  Age: 71 Year
  Sex: Female
  Weight: 73.94 kg

DRUGS (5)
  1. PROGESTERONE. [Concomitant]
     Active Substance: PROGESTERONE
     Indication: MENOPAUSAL DISORDER
     Dosage: UNK
  2. LEVOTHYROXINE. [Concomitant]
     Active Substance: LEVOTHYROXINE
     Indication: THYROID DISORDER
     Dosage: 0.75 MG, DAILY
     Route: 048
  3. ZOLOFT [Suspect]
     Active Substance: SERTRALINE HYDROCHLORIDE
     Indication: DEPRESSION
     Dosage: UNK
     Dates: start: 2004
  4. ZOLOFT [Suspect]
     Active Substance: SERTRALINE HYDROCHLORIDE
     Indication: ANXIETY
     Dosage: 250 MG, DAILY (100MG TABLETS: 2 1/2 TABLETS )
     Route: 048
     Dates: start: 201304
  5. ESTRADIOL. [Concomitant]
     Active Substance: ESTRADIOL
     Indication: MENOPAUSAL DISORDER
     Dosage: 1 MG, DAILY
     Route: 048

REACTIONS (5)
  - Product physical issue [Unknown]
  - Drug ineffective [Not Recovered/Not Resolved]
  - Temperature intolerance [Unknown]
  - Sensitivity to weather change [Unknown]
  - Overdose [Unknown]

NARRATIVE: CASE EVENT DATE: 2013
